FAERS Safety Report 17846574 (Version 7)
Quarter: 2020Q3

REPORT INFORMATION
  Report Type: Report from Study
  Country: US (occurrence: US)
  Receive Date: 20200601
  Receipt Date: 20200903
  Transmission Date: 20201103
  Serious: Yes (Other)
  Sender: FDA-Public Use
  Company Number: NVSC2020US150954

PATIENT
  Age: 64 Year
  Sex: Female

DRUGS (5)
  1. COSENTYX [Suspect]
     Active Substance: SECUKINUMAB
     Indication: PSORIASIS
     Dosage: 300 MG, 0.4 WEEKS
     Route: 058
  2. COSENTYX [Suspect]
     Active Substance: SECUKINUMAB
     Dosage: 300 MG, QMO (ONCE A WEEK FOR 5 WEEKS AND THEN Q4 WEEKS, 300 MG)
     Route: 058
  3. COSENTYX [Suspect]
     Active Substance: SECUKINUMAB
     Dosage: 300 MG, UNKNOWN
     Route: 058
  4. COSENTYX [Suspect]
     Active Substance: SECUKINUMAB
     Indication: PSORIASIS
     Dosage: RECEIVED SINCE FEB OR MAR 2020, 300 MG, QW
     Route: 058
  5. COSENTYX [Suspect]
     Active Substance: SECUKINUMAB
     Dosage: 300 MG, OTHER (ONCE A WEEK FOR 5 WEEKS AND THEN FOR EVERY 4 WEEKS)
     Route: 058
     Dates: start: 202003

REACTIONS (13)
  - Stress [Unknown]
  - SARS-CoV-2 antibody test positive [Unknown]
  - Depression [Unknown]
  - Nose deformity [Unknown]
  - Weight increased [Unknown]
  - Cough [Unknown]
  - Dry mouth [Unknown]
  - Feeling cold [Unknown]
  - Psychiatric symptom [Unknown]
  - Abdominal distension [Unknown]
  - Feeling hot [Unknown]
  - Arthralgia [Unknown]
  - Injection site haemorrhage [Unknown]

NARRATIVE: CASE EVENT DATE: 20200608
